FAERS Safety Report 18668207 (Version 2)
Quarter: 2021Q1

REPORT INFORMATION
  Report Type: Report from Study
  Country: None (occurrence: KR)
  Receive Date: 20201228
  Receipt Date: 20210329
  Transmission Date: 20210419
  Serious: Yes (Other)
  Sender: FDA-Public Use
  Company Number: KR-ABBVIE-20K-090-3705673-00

PATIENT
  Age: 50 Year
  Sex: Female
  Weight: 76 kg

DRUGS (11)
  1. SKYRIZI [Suspect]
     Active Substance: RISANKIZUMAB-RZAA
     Indication: PSORIASIS
     Route: 058
     Dates: start: 20200831, end: 20200831
  2. SKYRIZI [Suspect]
     Active Substance: RISANKIZUMAB-RZAA
     Route: 058
     Dates: start: 20210318, end: 20210318
  3. ESPERSON [Concomitant]
     Indication: PSORIASIS
     Dosage: LOTION?PRN
     Route: 061
     Dates: start: 20180626
  4. SKYRIZI [Suspect]
     Active Substance: RISANKIZUMAB-RZAA
     Route: 058
     Dates: start: 20201221, end: 20201221
  5. PYRIDOXINE SINIL [Concomitant]
     Route: 048
     Dates: start: 20201126
  6. YUHAN?ZID [Concomitant]
     Active Substance: ISONIAZID
     Route: 048
     Dates: start: 20201126
  7. SKYRIZI [Suspect]
     Active Substance: RISANKIZUMAB-RZAA
     Route: 058
     Dates: start: 20200928, end: 20200928
  8. YUHAN?ZID [Concomitant]
     Active Substance: ISONIAZID
     Indication: LATENT TUBERCULOSIS
     Route: 048
     Dates: start: 20200810, end: 20201025
  9. SKYRIZI [Suspect]
     Active Substance: RISANKIZUMAB-RZAA
     Route: 058
     Dates: start: 20201026, end: 20201026
  10. PYRIDOXINE SINIL [Concomitant]
     Indication: LATENT TUBERCULOSIS
     Route: 048
     Dates: start: 20200810, end: 20201025
  11. OMEGA 3 [Concomitant]
     Active Substance: OMEGA-3 FATTY ACIDS
     Indication: NUTRITIONAL SUPPLEMENTATION
     Route: 048
     Dates: start: 200001

REACTIONS (1)
  - Hepatotoxicity [Recovered/Resolved]

NARRATIVE: CASE EVENT DATE: 20200928
